FAERS Safety Report 26217229 (Version 1)
Quarter: 2025Q4

REPORT INFORMATION
  Report Type: Spontaneous
  Country: GB (occurrence: GB)
  Receive Date: 20251231
  Receipt Date: 20251231
  Transmission Date: 20260118
  Serious: Yes (Other)
  Sender: CELLTRION
  Company Number: GB-CELLTRION INC.-2025GB046534

PATIENT

DRUGS (5)
  1. RITUXIMAB [Suspect]
     Active Substance: RITUXIMAB
     Indication: Pemphigoid
  2. METHYLPREDNISOLONE [Concomitant]
     Active Substance: METHYLPREDNISOLONE
     Indication: Pemphigoid
  3. DAPSONE [Concomitant]
     Active Substance: DAPSONE
     Indication: Pemphigoid
  4. DUPILUMAB [Concomitant]
     Active Substance: DUPILUMAB
     Indication: Pemphigoid
  5. IMMUNE GLOBULIN NOS [Concomitant]
     Active Substance: IMMUNE GLOBULIN NOS
     Indication: Pemphigoid
     Route: 042

REACTIONS (2)
  - Immune thrombocytopenia [Unknown]
  - Intentional product use issue [Unknown]
